FAERS Safety Report 5841681-5 (Version None)
Quarter: 2008Q3

REPORT INFORMATION
  Report Type: 
  Country: None (occurrence: None)
  Receive Date: 20080811
  Receipt Date: 20080811
  Transmission Date: 20090109
  Serious: Yes (Life-Threatening, Other)
  Sender: FDA-Public Use
  Company Number: None

PATIENT
  Age: 59 Year
  Sex: Female
  Weight: 45.3597 kg

DRUGS (1)
  1. CYMBALTA [Suspect]
     Indication: DEPRESSION
     Dosage: 60MG ONCE PER DAY PO
     Route: 048
     Dates: start: 20050701, end: 20080220

REACTIONS (4)
  - AGEUSIA [None]
  - ALOPECIA [None]
  - EATING DISORDER [None]
  - WEIGHT DECREASED [None]
